FAERS Safety Report 19286937 (Version 1)
Quarter: 2021Q2

REPORT INFORMATION
  Report Type: Spontaneous
  Country: US (occurrence: US)
  Receive Date: 20210521
  Receipt Date: 20210521
  Transmission Date: 20210717
  Serious: No
  Sender: FDA-Public Use
  Company Number: US-ELI_LILLY_AND_COMPANY-US202105006236

PATIENT
  Sex: Female

DRUGS (1)
  1. BAMLANIVIMAB. [Suspect]
     Active Substance: BAMLANIVIMAB
     Indication: COVID-19 IMMUNISATION
     Dosage: UNK, SINGLE
     Route: 030

REACTIONS (2)
  - Wrong product administered [Recovered/Resolved]
  - Incorrect route of product administration [Recovered/Resolved]
